FAERS Safety Report 6452702-3 (Version None)
Quarter: 2009Q4

REPORT INFORMATION
  Report Type: 
  Country: None (occurrence: None)
  Receive Date: 20091124
  Receipt Date: 20091116
  Transmission Date: 20100525
  Serious: Yes (Other)
  Sender: FDA-Public Use
  Company Number: JP-ALLERGAN-0915991US

PATIENT
  Age: 60 Year
  Sex: Female

DRUGS (3)
  1. BOTOX [Suspect]
     Indication: BLEPHAROSPASM
     Dosage: 15 UNITS, SINGLE
     Route: 030
  2. HYALEIN [Concomitant]
     Dosage: UNK
     Route: 047
  3. KARY UNI [Concomitant]
     Dosage: UNK
     Route: 047

REACTIONS (2)
  - CONVULSION [None]
  - PERIORBITAL DISORDER [None]
